FAERS Safety Report 14948191 (Version 1)
Quarter: 2018Q2

REPORT INFORMATION
  Report Type: Spontaneous
  Country: IT (occurrence: IT)
  Receive Date: 20180529
  Receipt Date: 20180529
  Transmission Date: 20180711
  Serious: Yes (Hospitalization)
  Sender: FDA-Public Use
  Company Number: IT-DSJP-DSE-2018-121662

PATIENT

DRUGS (1)
  1. LIXIANA [Suspect]
     Active Substance: EDOXABAN TOSYLATE
     Indication: ATRIAL FLUTTER
     Dosage: 60 MG, QD
     Route: 048

REACTIONS (3)
  - Arterial thrombosis [Recovered/Resolved]
  - Angina pectoris [Recovered/Resolved]
  - Dyspnoea [Recovered/Resolved]
